FAERS Safety Report 6446420-5 (Version None)
Quarter: 2009Q4

REPORT INFORMATION
  Report Type: 
  Country: None (occurrence: None)
  Receive Date: 20091119
  Receipt Date: 20091109
  Transmission Date: 20100525
  Serious: Yes (Hospitalization)
  Sender: FDA-Public Use
  Company Number: PHEH2009US15412

PATIENT
  Sex: Female

DRUGS (2)
  1. EXJADE [Suspect]
     Dosage: 750 MG/DAILY
     Route: 048
  2. EXJADE [Suspect]
     Dosage: 750 MG, QD
     Route: 048

REACTIONS (2)
  - DIARRHOEA [None]
  - INFLUENZA [None]
